FAERS Safety Report 5225630-9 (Version None)
Quarter: 2007Q1

REPORT INFORMATION
  Report Type: 
  Country: None (occurrence: None)
  Receive Date: 20070129
  Receipt Date: 20070112
  Transmission Date: 20070707
  Serious: Yes (Life-Threatening, Hospitalization, Disabling)
  Sender: FDA-Public Use
  Company Number: DSA_29260_2007

PATIENT
  Age: 70 Year
  Sex: Female

DRUGS (13)
  1. ENALAPRIL MALEATE [Suspect]
     Indication: HYPERTENSION
     Dosage: 10 MG
  2. THORACIC EPIDURAL ANALGESIA [Suspect]
     Indication: ANAESTHESIA
     Dosage: DF IT
     Route: 037
  3. METOPROLOL SUCCINATE [Suspect]
     Indication: HYPERTENSION
     Dosage: 50 MG
  4. METOPROLOL SUCCINATE [Suspect]
     Indication: HYPERTENSION
     Dosage: DF
  5. INSULIN [Concomitant]
  6. CHLOORTALIDON [Concomitant]
  7. GENERAL ANESTHESIA [Concomitant]
  8. MORPHINE/BUPIVACAINE SOLUTION [Concomitant]
  9. NALOXONE [Concomitant]
  10. NALOXONE [Concomitant]
  11. NOREPINEPHRINE AND DOBUTAMINE [Concomitant]
  12. MAGNESIUM [Concomitant]
  13. PHOSPHATE /01684601/ [Concomitant]

REACTIONS (20)
  - BLOOD GLUCOSE INCREASED [None]
  - BLOOD PH DECREASED [None]
  - BRADYCARDIA [None]
  - CAROTID ARTERY STENOSIS [None]
  - CEREBRAL HYPOPERFUSION [None]
  - DEPENDENT PERSONALITY DISORDER [None]
  - DISORIENTATION [None]
  - EMOTIONAL DISORDER [None]
  - HAEMOGLOBIN DECREASED [None]
  - HYPERCAPNIA [None]
  - HYPOKALAEMIA [None]
  - HYPOMAGNESAEMIA [None]
  - HYPOPHOSPHATAEMIA [None]
  - HYPOTENSION [None]
  - IMPAIRED SELF-CARE [None]
  - LOSS OF CONSCIOUSNESS [None]
  - PANIC ATTACK [None]
  - PERSONALITY CHANGE [None]
  - SINUS BRADYCARDIA [None]
  - SPEECH DISORDER [None]
